FAERS Safety Report 8979901 (Version 1)
Quarter: 2012Q4

REPORT INFORMATION
  Report Type: 
  Country: US (occurrence: US)
  Receive Date: 20121221
  Receipt Date: 20121221
  Transmission Date: 20130627
  Serious: No
  Sender: FDA-Public Use
  Company Number: US-PFIZER INC-2012271215

PATIENT
  Age: 57 Year
  Sex: Female
  Weight: 120 kg

DRUGS (13)
  1. LYRICA [Suspect]
     Indication: FIBROMYALGIA
     Dosage: 50 mg, 1x/day
     Route: 048
     Dates: start: 2012, end: 201210
  2. LYRICA [Suspect]
     Dosage: 50 mg, 1x/day
     Route: 048
     Dates: start: 2012
  3. LEXAPRO [Concomitant]
     Dosage: 10 mg, one per day
     Route: 048
  4. GEODON [Concomitant]
     Dosage: 20 mg, 2x/day
  5. TOPAMAX [Concomitant]
     Dosage: 100 mg, 2x/day
  6. LAMICTAL [Concomitant]
     Dosage: 150 mg, 2x/day
  7. DIAZEPAM [Concomitant]
     Dosage: 5mg at night (HS)
  8. TEMAZEPAM [Concomitant]
     Dosage: 60mg at night (HS)
  9. HYZAAR [Concomitant]
     Dosage: [hydrochlorothiazide 100]/ [losartan potassium 25] daily
  10. COREG [Concomitant]
     Dosage: 12.5 mg, 2x/day
  11. PRAVACHOL [Concomitant]
     Dosage: 40mg at night (HS)
  12. PREVACID [Concomitant]
     Dosage: 20mg daily
  13. WELLBUTRIN SR [Concomitant]
     Dosage: 150, 2x/day

REACTIONS (3)
  - Diarrhoea [Recovered/Resolved]
  - Headache [Recovered/Resolved]
  - Nervousness [Recovered/Resolved]
